FAERS Safety Report 20759089 (Version 1)
Quarter: 2022Q2

REPORT INFORMATION
  Report Type: Spontaneous
  Country: US (occurrence: US)
  Receive Date: 20220427
  Receipt Date: 20220427
  Transmission Date: 20220721
  Serious: No
  Sender: FDA-Public Use
  Company Number: US-BioHaven Pharmaceuticals-2021BHV003178

PATIENT
  Sex: Female

DRUGS (1)
  1. NURTEC ODT [Suspect]
     Active Substance: RIMEGEPANT SULFATE
     Indication: Migraine
     Dosage: SHE IS TAKING THE NURTEC EVERY DAY SINCE HER DOCTOR TOLD HER SHE COULD TAKE ONE IF SHE HAPPENED TO G
     Route: 065
     Dates: start: 202112

REACTIONS (1)
  - Migraine [Unknown]
